FAERS Safety Report 21687236 (Version 6)
Quarter: 2023Q1

REPORT INFORMATION
  Report Type: Report from Study
  Country: US (occurrence: US)
  Receive Date: 20221206
  Receipt Date: 20230310
  Transmission Date: 20230418
  Serious: Yes (Hospitalization, Other)
  Sender: FDA-Public Use
  Company Number: US-TAKEDA-2022TUS085015

PATIENT
  Sex: Male

DRUGS (20)
  1. TEDUGLUTIDE [Suspect]
     Active Substance: TEDUGLUTIDE
     Indication: Short-bowel syndrome
     Dosage: 0.315 MILLILITER, QD
     Route: 058
     Dates: start: 202210
  2. TEDUGLUTIDE [Suspect]
     Active Substance: TEDUGLUTIDE
     Indication: Short-bowel syndrome
     Dosage: 0.315 MILLILITER, QD
     Route: 058
     Dates: start: 202210
  3. TEDUGLUTIDE [Suspect]
     Active Substance: TEDUGLUTIDE
     Indication: Short-bowel syndrome
     Dosage: 0.315 MILLILITER, QD
     Route: 058
     Dates: start: 202210
  4. TEDUGLUTIDE [Suspect]
     Active Substance: TEDUGLUTIDE
     Indication: Short-bowel syndrome
     Dosage: 0.315 MILLILITER, QD
     Route: 058
     Dates: start: 202210
  5. TEDUGLUTIDE [Suspect]
     Active Substance: TEDUGLUTIDE
     Dosage: 0.315 MILLILITER, QD
     Route: 058
     Dates: start: 20221102
  6. TEDUGLUTIDE [Suspect]
     Active Substance: TEDUGLUTIDE
     Dosage: 0.315 MILLILITER, QD
     Route: 058
     Dates: start: 20221102
  7. TEDUGLUTIDE [Suspect]
     Active Substance: TEDUGLUTIDE
     Dosage: 0.315 MILLILITER, QD
     Route: 058
     Dates: start: 20221102
  8. TEDUGLUTIDE [Suspect]
     Active Substance: TEDUGLUTIDE
     Dosage: 0.315 MILLILITER, QD
     Route: 058
     Dates: start: 20221102
  9. TEDUGLUTIDE [Suspect]
     Active Substance: TEDUGLUTIDE
     Dosage: 0.315 MILLILITER, QD
     Route: 058
     Dates: start: 20221103
  10. TEDUGLUTIDE [Suspect]
     Active Substance: TEDUGLUTIDE
     Dosage: 0.315 MILLILITER, QD
     Route: 058
     Dates: start: 20221103
  11. TEDUGLUTIDE [Suspect]
     Active Substance: TEDUGLUTIDE
     Dosage: 0.315 MILLILITER, QD
     Route: 058
     Dates: start: 20221103
  12. TEDUGLUTIDE [Suspect]
     Active Substance: TEDUGLUTIDE
     Dosage: 0.315 MILLILITER, QD
     Route: 058
     Dates: start: 20221103
  13. TEDUGLUTIDE [Suspect]
     Active Substance: TEDUGLUTIDE
     Dosage: 3.15 MILLIGRAM, QD
     Route: 058
     Dates: start: 20221106
  14. TEDUGLUTIDE [Suspect]
     Active Substance: TEDUGLUTIDE
     Dosage: 3.15 MILLIGRAM, QD
     Route: 058
     Dates: start: 20221106
  15. TEDUGLUTIDE [Suspect]
     Active Substance: TEDUGLUTIDE
     Dosage: 3.15 MILLIGRAM, QD
     Route: 058
     Dates: start: 20221106
  16. TEDUGLUTIDE [Suspect]
     Active Substance: TEDUGLUTIDE
     Dosage: 3.15 MILLIGRAM, QD
     Route: 058
     Dates: start: 20221106
  17. TEDUGLUTIDE [Suspect]
     Active Substance: TEDUGLUTIDE
     Dosage: 0.315 MILLILITER, QD
     Route: 058
     Dates: start: 202211
  18. TEDUGLUTIDE [Suspect]
     Active Substance: TEDUGLUTIDE
     Dosage: 0.315 MILLILITER, QD
     Route: 058
     Dates: start: 202211
  19. TEDUGLUTIDE [Suspect]
     Active Substance: TEDUGLUTIDE
     Dosage: 0.315 MILLILITER, QD
     Route: 058
     Dates: start: 202211
  20. TEDUGLUTIDE [Suspect]
     Active Substance: TEDUGLUTIDE
     Dosage: 0.315 MILLILITER, QD
     Route: 058
     Dates: start: 202211

REACTIONS (10)
  - Intussusception [Recovered/Resolved]
  - Dehydration [Unknown]
  - Cryptosporidiosis infection [Unknown]
  - Crohn^s disease [Unknown]
  - Blood creatinine increased [Unknown]
  - Dizziness [Unknown]
  - Muscle spasms [Unknown]
  - Arthralgia [Unknown]
  - Joint stiffness [Unknown]
  - Nasopharyngitis [Unknown]
